FAERS Safety Report 5682442-X (Version None)
Quarter: 2008Q1

REPORT INFORMATION
  Report Type: 
  Country: None (occurrence: None)
  Receive Date: 20080327
  Receipt Date: 20080321
  Transmission Date: 20080703
  Serious: Yes (Death, Hospitalization, Other)
  Sender: FDA-Public Use
  Company Number: US-BRISTOL-MYERS SQUIBB COMPANY-14084750

PATIENT
  Age: 80 Year
  Sex: Female
  Weight: 73 kg

DRUGS (5)
  1. IXEMPRA [Suspect]
     Indication: ENDOMETRIAL CANCER
     Dosage: DOSE: 40MG/M2 IV OVER 3HOURS ON DAY1 INITIAL DOSE: 04-OCT-2007 LAST DOSE:    27-DEC-2007
     Route: 042
     Dates: start: 20071227, end: 20071227
  2. DETROL [Concomitant]
  3. MAXIDEX [Concomitant]
  4. PRILOSEC [Concomitant]
  5. SINEMET [Concomitant]

REACTIONS (7)
  - ATAXIA [None]
  - CONFUSIONAL STATE [None]
  - FEBRILE NEUTROPENIA [None]
  - HAEMOGLOBIN DECREASED [None]
  - HYPOXIA [None]
  - PLEURAL EFFUSION [None]
  - PNEUMONITIS [None]
